FAERS Safety Report 23961664 (Version 1)
Quarter: 2024Q2

REPORT INFORMATION
  Report Type: Spontaneous
  Country: US (occurrence: US)
  Receive Date: 20240611
  Receipt Date: 20240611
  Transmission Date: 20240715
  Serious: No
  Sender: FDA-Public Use
  Company Number: US-TEVA-VS-3204672

PATIENT

DRUGS (4)
  1. LEVOFLOXACIN INJECTION IN 5% DEXTROSE [Suspect]
     Active Substance: LEVOFLOXACIN
     Indication: Urinary tract infection
     Dosage: FOR 5 DAYS
     Route: 048
     Dates: start: 202312
  2. CELEBREX [Concomitant]
     Active Substance: CELECOXIB
     Indication: Arthritis
     Dosage: 100
     Route: 065
  3. Lyrica 100 [Concomitant]
     Indication: Neuralgia
     Dosage: 100
     Route: 065
  4. ZOLPIDEM [Concomitant]
     Active Substance: ZOLPIDEM TARTRATE
     Indication: Insomnia
     Dosage: 10 MG NIGHT
     Route: 065

REACTIONS (1)
  - Tendon pain [Not Recovered/Not Resolved]
